FAERS Safety Report 6674571-9 (Version None)
Quarter: 2010Q2

REPORT INFORMATION
  Report Type: 
  Country: None (occurrence: None)
  Receive Date: 20100409
  Receipt Date: 20100329
  Transmission Date: 20101027
  Serious: Yes (Other)
  Sender: FDA-Public Use
  Company Number: US-PFIZER INC-2010031093

PATIENT
  Sex: Female
  Weight: 55.782 kg

DRUGS (5)
  1. ZOLOFT [Suspect]
     Indication: DEPRESSION
     Dosage: 150 MG, DAILY
     Dates: start: 20000101, end: 20100101
  2. ZOLOFT [Suspect]
     Dosage: 50 MG, DAILY
     Dates: start: 20000101
  3. AMOXICILLIN [Suspect]
  4. WELLBUTRIN XL [Concomitant]
     Indication: DEPRESSION
     Dosage: 150
     Dates: start: 20050101, end: 20080101
  5. CALCIUM [Concomitant]
     Dosage: UNK

REACTIONS (7)
  - ATROPHY [None]
  - DRUG HYPERSENSITIVITY [None]
  - FALL [None]
  - GAIT DISTURBANCE [None]
  - MUSCULAR WEAKNESS [None]
  - PERONEAL MUSCULAR ATROPHY [None]
  - TREMOR [None]
